FAERS Safety Report 7821648-8 (Version None)
Quarter: 2011Q4

REPORT INFORMATION
  Report Type: 
  Country: None (occurrence: None)
  Receive Date: 20111018
  Receipt Date: 20110120
  Transmission Date: 20120403
  Serious: No
  Sender: FDA-Public Use
  Company Number: US-ASTRAZENECA-2011SE03424

PATIENT
  Age: 70 Year
  Sex: Male
  Weight: 81.6 kg

DRUGS (2)
  1. RESCUE INHALER [Concomitant]
  2. SYMBICORT [Suspect]
     Indication: BRONCHITIS CHRONIC
     Dosage: 160/4.5, 2 PUFFS TWO TIMES A DAY
     Route: 055

REACTIONS (3)
  - DYSPNOEA [None]
  - CHOKING [None]
  - DRUG INEFFECTIVE [None]
